FAERS Safety Report 7978077-6 (Version None)
Quarter: 2011Q4

REPORT INFORMATION
  Report Type: 
  Country: None (occurrence: None)
  Receive Date: 20111214
  Receipt Date: 20111205
  Transmission Date: 20120403
  Serious: Yes (Death)
  Sender: FDA-Public Use
  Company Number: DE-NOVOPROD-340854

PATIENT

DRUGS (1)
  1. ACTRAPID [Suspect]
     Indication: OFF LABEL USE

REACTIONS (1)
  - COMPLETED SUICIDE [None]
